FAERS Safety Report 4319016-9 (Version None)
Quarter: 2004Q1

REPORT INFORMATION
  Report Type: 
  Country: None (occurrence: None)
  Receive Date: 20040316
  Receipt Date: 20040302
  Transmission Date: 20041129
  Serious: Yes (Other)
  Sender: FDA-Public Use
  Company Number: 2004-BP-01611AU

PATIENT
  Age: 82 Year
  Sex: Male

DRUGS (5)
  1. SPIRIVA [Suspect]
     Indication: CHRONIC OBSTRUCTIVE AIRWAYS DISEASE
     Dosage: 18 MCG (18 MCG, 1 CAPSULE INHALED DAILY), IH
     Route: 055
  2. SEREVENT [Concomitant]
  3. FLIXOTIDE (FLUTICASONE) [Concomitant]
  4. WARFARIN SODIUM [Concomitant]
  5. LANSOPRAZOLE [Concomitant]

REACTIONS (1)
  - ARRHYTHMIA [None]
